FAERS Safety Report 14390672 (Version 3)
Quarter: 2024Q1

REPORT INFORMATION
  Report Type: Report from Study
  Country: US (occurrence: US)
  Receive Date: 20180116
  Receipt Date: 20240306
  Transmission Date: 20240409
  Serious: No
  Sender: FDA-Public Use
  Company Number: US-PUMA BIOTECHNOLOGY, LTD.-2017US013737

PATIENT

DRUGS (14)
  1. NERLYNX [Suspect]
     Active Substance: NERATINIB
     Indication: Breast cancer
     Dosage: 6 TABLETS, DAILY
     Route: 048
     Dates: start: 20171028
  2. ATIVAN [Concomitant]
     Active Substance: LORAZEPAM
     Indication: Product used for unknown indication
  3. ZOFRAN [Concomitant]
     Active Substance: ONDANSETRON HYDROCHLORIDE
     Indication: Product used for unknown indication
  4. METHYLPREDNISOLONE [Concomitant]
     Active Substance: METHYLPREDNISOLONE
     Indication: Product used for unknown indication
  5. PEPCID                             /00305201/ [Concomitant]
     Indication: Chemotherapy
     Route: 042
  6. TYKERB [Concomitant]
     Active Substance: LAPATINIB DITOSYLATE
     Indication: Product used for unknown indication
  7. ABRAXANE [Concomitant]
     Active Substance: PACLITAXEL
     Indication: Product used for unknown indication
     Route: 042
  8. HERCEPTIN [Concomitant]
     Active Substance: TRASTUZUMAB
     Indication: Product used for unknown indication
     Route: 042
  9. IMODIUM A-D [Concomitant]
     Active Substance: LOPERAMIDE HYDROCHLORIDE
     Indication: Product used for unknown indication
  10. BENADRYL [Concomitant]
     Active Substance: DIPHENHYDRAMINE HYDROCHLORIDE
     Indication: Product used for unknown indication
  11. LOMOTIL [Concomitant]
     Active Substance: ATROPINE SULFATE\DIPHENOXYLATE HYDROCHLORIDE
     Indication: Product used for unknown indication
  12. LORAZEPAM [Concomitant]
     Active Substance: LORAZEPAM
     Indication: Product used for unknown indication
  13. MAGNESIUM                          /00082501/ [Concomitant]
     Indication: Product used for unknown indication
  14. TUMS                               /00193601/ [Concomitant]
     Indication: Product used for unknown indication

REACTIONS (3)
  - Diarrhoea [Recovering/Resolving]
  - Influenza [Unknown]
  - Product dose omission issue [Unknown]
